FAERS Safety Report 6830011-8 (Version None)
Quarter: 2010Q3

REPORT INFORMATION
  Report Type: 
  Country: None (occurrence: None)
  Receive Date: 20100711
  Receipt Date: 20100430
  Transmission Date: 20110219
  Serious: No
  Sender: FDA-Public Use
  Company Number: US-ALLERGAN-1005590US

PATIENT
  Age: 72 Year
  Sex: Female

DRUGS (2)
  1. LATISSE [Suspect]
     Indication: GROWTH OF EYELASHES
     Dosage: 1 GTT, QHS
     Route: 061
     Dates: start: 20100101, end: 20100401
  2. EYE DROPS [Concomitant]
     Indication: DRY EYE

REACTIONS (6)
  - EYE PRURITUS [None]
  - MADAROSIS [None]
  - OCULAR HYPERAEMIA [None]
  - TRICHIASIS [None]
  - VISUAL IMPAIRMENT [None]
  - WRONG TECHNIQUE IN DRUG USAGE PROCESS [None]
